FAERS Safety Report 17791560 (Version 2)
Quarter: 2020Q4

REPORT INFORMATION
  Report Type: Report from Study
  Country: US (occurrence: US)
  Receive Date: 20200515
  Receipt Date: 20201117
  Transmission Date: 20210113
  Serious: No
  Sender: FDA-Public Use
  Company Number: NVSC2020US131262

PATIENT
  Sex: Female

DRUGS (1)
  1. MAYZENT [Suspect]
     Active Substance: SIPONIMOD
     Indication: PRODUCT USED FOR UNKNOWN INDICATION
     Dosage: 2 MG, UNKNOWN
     Route: 048
     Dates: start: 201906, end: 202010

REACTIONS (3)
  - Chest pain [Recovered/Resolved]
  - Peroneal nerve palsy [Recovered/Resolved with Sequelae]
  - Lymphocyte count decreased [Unknown]
